FAERS Safety Report 9497121 (Version 1)
Quarter: 2013Q3

REPORT INFORMATION
  Report Type: Spontaneous
  Country: US (occurrence: None)
  Receive Date: 20130903
  Receipt Date: 20130903
  Transmission Date: 20140515
  Serious: Yes (Hospitalization, Disabling, Other)
  Sender: FDA-Public Use
  Company Number: None

PATIENT
  Age: 60 Year
  Sex: Female
  Weight: 48.08 kg

DRUGS (8)
  1. HALDOL [Suspect]
     Indication: AGITATION
     Dosage: 10 MG  AS NEEDED INTO THE MUSCLE
     Route: 030
     Dates: start: 20130806, end: 20130820
  2. HALDOL [Suspect]
     Indication: PSYCHOTIC DISORDER
     Dosage: 10 MG  AS NEEDED INTO THE MUSCLE
     Route: 030
     Dates: start: 20130806, end: 20130820
  3. ABILIFY [Concomitant]
  4. TOPOMAX [Concomitant]
  5. IMITREX [Concomitant]
  6. VIT D 2000 IU [Concomitant]
  7. CALCIUM 1000MG [Concomitant]
  8. STOO SOFTNER [Concomitant]

REACTIONS (5)
  - Arthralgia [None]
  - Pain in extremity [None]
  - Pain in extremity [None]
  - Piriformis syndrome [None]
  - Therapeutic response decreased [None]
